FAERS Safety Report 20297854 (Version 1)
Quarter: 2022Q1

REPORT INFORMATION
  Report Type: Spontaneous
  Country: US (occurrence: US)
  Receive Date: 20220105
  Receipt Date: 20220105
  Transmission Date: 20220423
  Serious: No
  Sender: FDA-Public Use
  Company Number: US-ORGANON-O2112USA001563

PATIENT
  Sex: Female

DRUGS (2)
  1. IMPLANON [Suspect]
     Active Substance: ETONOGESTREL
     Indication: Contraception
     Dosage: 1 ROD OF 68 MG IN LEFT ARM
     Route: 059
     Dates: start: 2014
  2. NEXPLANON [Suspect]
     Active Substance: ETONOGESTREL
     Dosage: 1 IMPLANT IN RIGHT ARM
     Route: 059
     Dates: start: 2016, end: 2019

REACTIONS (8)
  - Infertility female [Unknown]
  - Pain in extremity [Unknown]
  - Device issue [Not Recovered/Not Resolved]
  - Device placement issue [Unknown]
  - Complication associated with device [Recovered/Resolved]
  - Incorrect product administration duration [Unknown]
  - Device use issue [Unknown]
  - Overdose [Unknown]

NARRATIVE: CASE EVENT DATE: 20160101
